FAERS Safety Report 4293049-3 (Version None)
Quarter: 2004Q1

REPORT INFORMATION
  Report Type: 
  Country: None (occurrence: None)
  Receive Date: 20040210
  Receipt Date: 20040129
  Transmission Date: 20041129
  Serious: Yes (Life-Threatening)
  Sender: FDA-Public Use
  Company Number: JP-JNJFOC-20040200337

PATIENT
  Age: 59 Year
  Sex: Male

DRUGS (3)
  1. FENTANYL [Suspect]
     Indication: CANCER PAIN
     Dosage: SEE IMAGE
     Route: 062
  2. MIDAZOLAM (MIDAZOLAM) UNKNOWN [Suspect]
     Indication: CANCER PAIN
     Dosage: INTRAVENOUS
     Route: 042
  3. MORPHINE HYDROCHLORIDE (MORPHINE HYDROCHLORIDE) [Concomitant]

REACTIONS (4)
  - DEPRESSED LEVEL OF CONSCIOUSNESS [None]
  - DRUG INTERACTION [None]
  - NEUROLEPTIC MALIGNANT SYNDROME [None]
  - RESPIRATORY DEPRESSION [None]
